FAERS Safety Report 13120903 (Version 1)
Quarter: 2017Q1

REPORT INFORMATION
  Report Type: Spontaneous
  Country: US (occurrence: US)
  Receive Date: 20170113
  Receipt Date: 20170113
  Transmission Date: 20170428
  Serious: No
  Sender: FDA-Public Use
  Company Number: None

PATIENT
  Age: 50 Year
  Sex: Female
  Weight: 112.5 kg

DRUGS (23)
  1. XANAX [Concomitant]
     Active Substance: ALPRAZOLAM
  2. CITALOPRAM HYDROBROMIDE (CELEXA) [Concomitant]
  3. IBUPROFEN. [Concomitant]
     Active Substance: IBUPROFEN
  4. LORAZEPAM (ATIVAN) [Concomitant]
  5. DENOSUMAB (XGEVA) [Concomitant]
  6. PALBOCICLIB (IBRANCE) [Concomitant]
  7. CRANBERRY. [Concomitant]
     Active Substance: CRANBERRY
  8. GLUCOSAMINE-CHONDROITIN [Concomitant]
     Active Substance: CHONDROITIN SULFATE (BOVINE)\GLUCOSAMINE SULFATE
  9. TRAMADOL HCL [Concomitant]
     Active Substance: TRAMADOL HYDROCHLORIDE
  10. FLUCONAZOLE. [Concomitant]
     Active Substance: FLUCONAZOLE
  11. ASPIRIN. [Concomitant]
     Active Substance: ASPIRIN
  12. CALCIUM CARBONATE-VITAMIN D (CALTRATE 600+D) [Concomitant]
  13. FLUITCASONE (VERAMYST) [Concomitant]
  14. MELATONIN [Concomitant]
     Active Substance: MELATONIN
  15. METHYLPHENIDATE (RITALIN) [Concomitant]
  16. ONDASETRON (ZOFRAN ODT) [Concomitant]
  17. IBRANCE [Suspect]
     Active Substance: PALBOCICLIB
     Indication: BREAST CANCER METASTATIC
     Dosage: QUANTITY:1 CAPSULE(S); DAILY; ORAL?
     Route: 048
     Dates: start: 20160908
  18. ZYRTEC [Concomitant]
     Active Substance: CETIRIZINE HYDROCHLORIDE
  19. ESTRADIOL (VAGIFEM) [Concomitant]
  20. FISH OIL-OMEGA-3 FATTY ACIDS (FISH OIL) [Concomitant]
  21. POLYETHYLENE GLYCOL 3350 (DUCOLAX BALACE) [Concomitant]
  22. FASLODEX [Concomitant]
     Active Substance: FULVESTRANT
  23. HYDROCODONE-ACETAMINOPHEN (NORCO) [Concomitant]

REACTIONS (3)
  - Gait disturbance [None]
  - Muscular weakness [None]
  - Grip strength decreased [None]

NARRATIVE: CASE EVENT DATE: 20161101
